FAERS Safety Report 7530056-9 (Version None)
Quarter: 2011Q2

REPORT INFORMATION
  Report Type: 
  Country: None (occurrence: None)
  Receive Date: 20110527
  Receipt Date: 20110520
  Transmission Date: 20111010
  Serious: Yes (Life-Threatening, Other)
  Sender: FDA-Public Use
  Company Number: 2011SP011425

PATIENT
  Age: 14 Year
  Sex: Female

DRUGS (1)
  1. DULERA TABLET [Suspect]
     Indication: ASTHMA
     Dosage: 1 DF;QD;
     Dates: start: 20110101

REACTIONS (12)
  - DYSPNOEA [None]
  - OROPHARYNGEAL PAIN [None]
  - NERVOUS SYSTEM DISORDER [None]
  - HYPERTENSION [None]
  - NERVOUSNESS [None]
  - DIZZINESS [None]
  - HYPOXIA [None]
  - EDUCATIONAL PROBLEM [None]
  - HEART RATE INCREASED [None]
  - CHEST PAIN [None]
  - HYPOPNOEA [None]
  - CARDIAC DISORDER [None]
